FAERS Safety Report 9394756 (Version 2)
Quarter: 2013Q3

REPORT INFORMATION
  Report Type: Spontaneous
  Country: FR (occurrence: FR)
  Receive Date: 20130711
  Receipt Date: 20130821
  Transmission Date: 20140515
  Serious: Yes (Hospitalization)
  Sender: FDA-Public Use
  Company Number: FR-ROCHE-1246753

PATIENT
  Age: 58 Year
  Sex: Male

DRUGS (8)
  1. COPEGUS [Suspect]
     Indication: CHRONIC HEPATITIS
     Dosage: 400 MG IN THE MORNING AND 600 MG IN THE EVENING
     Route: 048
     Dates: start: 20130318, end: 20130612
  2. COPEGUS [Suspect]
     Route: 065
     Dates: start: 2005
  3. PEGASYS [Suspect]
     Indication: CHRONIC HEPATITIS
     Route: 058
     Dates: start: 20130323, end: 20130610
  4. PEGASYS [Suspect]
     Route: 065
     Dates: start: 2005
  5. INCIVO [Suspect]
     Indication: CHRONIC HEPATITIS
     Route: 048
     Dates: start: 20130318, end: 20130610
  6. ARANESP [Suspect]
     Indication: ANAEMIA
     Route: 058
     Dates: start: 20130423, end: 20130612
  7. POLARAMINE [Concomitant]
     Indication: RASH
     Route: 048
     Dates: start: 20130513, end: 20130518
  8. XYZALL [Concomitant]
     Indication: RASH
     Route: 048
     Dates: start: 20130513, end: 20130518

REACTIONS (1)
  - Drug reaction with eosinophilia and systemic symptoms [Not Recovered/Not Resolved]
